FAERS Safety Report 5672727-5 (Version None)
Quarter: 2008Q1

REPORT INFORMATION
  Report Type: 
  Country: None (occurrence: None)
  Receive Date: 20080319
  Receipt Date: 20070823
  Transmission Date: 20080703
  Serious: No
  Sender: FDA-Public Use
  Company Number: US-KINGPHARMUSA00001-K200701082

PATIENT

DRUGS (3)
  1. ALTACE [Suspect]
     Dosage: 2.5 MG, BID
     Route: 048
     Dates: start: 20070701, end: 20070101
  2. ALTACE [Suspect]
     Dosage: 10 MG, QD
     Route: 048
     Dates: start: 20070101
  3. ASPIRIN [Concomitant]

REACTIONS (3)
  - COUGH [None]
  - INSOMNIA [None]
  - PRODUCTIVE COUGH [None]
